FAERS Safety Report 6478841-9 (Version None)
Quarter: 2009Q4

REPORT INFORMATION
  Report Type: 
  Country: None (occurrence: None)
  Receive Date: 20091202
  Receipt Date: 20091119
  Transmission Date: 20100525
  Serious: Yes (Other)
  Sender: FDA-Public Use
  Company Number: 2009299751

PATIENT
  Age: 63 Year
  Sex: Female

DRUGS (3)
  1. FRAGMIN [Suspect]
     Indication: THROMBOSIS PROPHYLAXIS
     Dosage: 7500 IU, 1 X/DAY, SUBCUTANEOUS; 7500 IU, 2X/DAY, SUBCUTANEOUS
     Route: 058
  2. FRAGMIN [Suspect]
     Indication: THROMBOSIS PROPHYLAXIS
     Dosage: 7500 IU, 1 X/DAY, SUBCUTANEOUS; 7500 IU, 2X/DAY, SUBCUTANEOUS
     Route: 058
  3. BETALOC (METOPROLOL TARTRATE) [Concomitant]

REACTIONS (2)
  - ARTHRALGIA [None]
  - INJECTION SITE HAEMORRHAGE [None]
